FAERS Safety Report 7236775-6 (Version None)
Quarter: 2011Q1

REPORT INFORMATION
  Report Type: 
  Country: None (occurrence: None)
  Receive Date: 20110120
  Receipt Date: 20110106
  Transmission Date: 20110831
  Serious: No
  Sender: FDA-Public Use
  Company Number: US-B.I. PHARMACEUTICALS,INC./RIDGEFIELD-2011-BP-00831BP

PATIENT
  Sex: Male

DRUGS (11)
  1. GLIPIZIDE AND METFORMIN HCL [Concomitant]
     Indication: DIABETES MELLITUS
     Route: 048
  2. AMBIEN [Concomitant]
     Indication: INSOMNIA
     Dosage: 10 MG
     Route: 048
  3. ASPIRIN [Concomitant]
     Dosage: 81 MG
     Route: 048
  4. FLOMAX [Concomitant]
     Indication: PROSTATIC DISORDER
  5. SIMVASTATIN [Concomitant]
     Indication: BLOOD CHOLESTEROL INCREASED
     Dosage: 40 MG
     Route: 048
  6. CARVEDILOL [Concomitant]
     Indication: CARDIAC DISORDER
     Dosage: 6.25 MG
     Route: 048
  7. COZAAR [Concomitant]
     Indication: HYPERTENSION
     Dosage: 50 MG
     Route: 048
  8. SPIRIVA [Suspect]
     Indication: CHRONIC OBSTRUCTIVE PULMONARY DISEASE
     Dosage: 18 MCG
     Route: 055
     Dates: start: 20100801
  9. FLOMAX [Concomitant]
     Indication: BLADDER DISORDER
     Dosage: 1 MG
     Route: 048
  10. AMLODIPINE [Concomitant]
     Indication: CARDIAC DISORDER
     Dosage: 5 MG
     Route: 048
  11. ADVAIR DISKUS 100/50 [Concomitant]
     Indication: INCREASED UPPER AIRWAY SECRETION
     Route: 055
     Dates: start: 20101001

REACTIONS (5)
  - INCREASED UPPER AIRWAY SECRETION [None]
  - DIZZINESS [None]
  - DRY THROAT [None]
  - DYSPNOEA [None]
  - DYSPHONIA [None]
